FAERS Safety Report 4338539-X (Version None)
Quarter: 2004Q2

REPORT INFORMATION
  Report Type: 
  Country: None (occurrence: None)
  Receive Date: 20040407
  Receipt Date: 20040324
  Transmission Date: 20050107
  Serious: Yes (Hospitalization)
  Sender: FDA-Public Use
  Company Number: 2004017944

PATIENT
  Sex: Male

DRUGS (12)
  1. LOPID [Suspect]
     Indication: ILL-DEFINED DISORDER
     Dates: start: 20031101
  2. LIPITOR [Suspect]
     Indication: ILL-DEFINED DISORDER
  3. SIMVASTATIN [Suspect]
     Indication: ILL-DEFINED DISORDER
     Dates: start: 20010101
  4. METFORMIN HCL [Concomitant]
  5. GLICLAZIDE [Concomitant]
  6. ROSIGLITAZONE MESILATE(ROSIGLITAZONE MESILATE) [Concomitant]
  7. BENDROFLUMETHIAZIDE (BENDROFLUMETHIAZIDE) [Concomitant]
  8. ISOSORBIDE MONONITRATE [Concomitant]
  9. OMEPRAZOLE [Concomitant]
  10. ROFECOXIB [Concomitant]
  11. RAMIPRIL [Concomitant]
  12. GLYCERYL TRINITREATE (GLYCERYL TRINITRATE) [Concomitant]

REACTIONS (2)
  - ANGINA PECTORIS [None]
  - MUSCLE DISORDER [None]
